FAERS Safety Report 8226186-9 (Version None)
Quarter: 2012Q1

REPORT INFORMATION
  Report Type: 
  Country: None (occurrence: None)
  Receive Date: 20120307
  Receipt Date: 20100907
  Transmission Date: 20120608
  Serious: No
  Sender: FDA-Public Use
  Company Number: PHEH2010US03713

PATIENT
  Age: 40 Year
  Sex: Female

DRUGS (2)
  1. AFINITOR [Suspect]
     Dosage: 10 MG, QD, ORAL
     Route: 048
     Dates: start: 20100801, end: 20100907
  2. SANDOSTATIN LAR [Concomitant]

REACTIONS (1)
  - VULVOVAGINAL BURNING SENSATION [None]
